FAERS Safety Report 8168869-5 (Version None)
Quarter: 2012Q1

REPORT INFORMATION
  Report Type: 
  Country: None (occurrence: None)
  Receive Date: 20120222
  Receipt Date: 20120208
  Transmission Date: 20120608
  Serious: Yes (Death, Other)
  Sender: FDA-Public Use
  Company Number: 1000023017

PATIENT
  Age: 63 Year
  Weight: 56 kg

DRUGS (7)
  1. ALPRAZOLAM [Suspect]
  2. KETOBEMIDONE (KETOBEMIDONE) [Suspect]
  3. MIANSERINE (MIANSERIN HYDROCHLORIDE) [Suspect]
  4. DIAZEPAM [Suspect]
  5. CITALOPRAM HYDROBROMIDE [Suspect]
     Indication: MENTAL DISORDER
  6. FLUNITRAZEPAM (FLUNITRAZEPAM) [Suspect]
  7. AMLODIPINE [Suspect]

REACTIONS (2)
  - MULTIPLE DRUG OVERDOSE [None]
  - TOXICITY TO VARIOUS AGENTS [None]
